FAERS Safety Report 8256768-X (Version None)
Quarter: 2012Q2

REPORT INFORMATION
  Report Type: 
  Country: None (occurrence: None)
  Receive Date: 20120403
  Receipt Date: 20120328
  Transmission Date: 20120825
  Serious: Yes (Death, Hospitalization)
  Sender: FDA-Public Use
  Company Number: US-CELGENEUS-163-21880-12033343

PATIENT
  Age: 73 Year
  Sex: Male

DRUGS (9)
  1. REVLIMID [Suspect]
     Indication: MULTIPLE MYELOMA
     Dosage: 10 MILLIGRAM
     Route: 048
     Dates: start: 20120201, end: 20120301
  2. BUMEX [Concomitant]
     Route: 065
  3. ASPIRIN [Concomitant]
     Route: 065
  4. ZOCOR [Concomitant]
     Route: 065
  5. METFORMIN HCL [Concomitant]
     Route: 065
  6. HYDRALAZINE HCL [Concomitant]
     Route: 065
  7. DEXAMETHASONE [Concomitant]
     Route: 065
  8. ATENOLOL [Concomitant]
     Route: 065
  9. SPIRONOLACTONE [Concomitant]
     Route: 065

REACTIONS (5)
  - FAILURE TO THRIVE [None]
  - SEPSIS [None]
  - DEATH [None]
  - ORGAN FAILURE [None]
  - ASTHENIA [None]
